FAERS Safety Report 14343028 (Version 1)
Quarter: 2018Q1

REPORT INFORMATION
  Report Type: Spontaneous
  Country: US (occurrence: US)
  Receive Date: 20180102
  Receipt Date: 20180102
  Transmission Date: 20180509
  Serious: Yes (Hospitalization, Disabling)
  Sender: FDA-Public Use
  Company Number: US-JNJFOC-20171236504

PATIENT
  Age: 42 Year
  Sex: Male
  Weight: 95.26 kg

DRUGS (1)
  1. INVOKANA [Suspect]
     Active Substance: CANAGLIFLOZIN
     Indication: TYPE 2 DIABETES MELLITUS
     Route: 048
     Dates: start: 201412

REACTIONS (3)
  - Cellulitis [Unknown]
  - Osteomyelitis [Unknown]
  - Foot amputation [Unknown]

NARRATIVE: CASE EVENT DATE: 201705
